FAERS Safety Report 9264002 (Version 1)
Quarter: 2013Q2

REPORT INFORMATION
  Report Type: Report from Study
  Country: US (occurrence: US)
  Receive Date: 20130430
  Receipt Date: 20130430
  Transmission Date: 20140414
  Serious: Yes (Other)
  Sender: FDA-Public Use
  Company Number: US-ACTELION-A-US2009-28054

PATIENT
  Age: 67 Year
  Sex: Female

DRUGS (1)
  1. TRACLEER [Suspect]
     Indication: PULMONARY ARTERIAL HYPERTENSION
     Route: 048
     Dates: start: 20091009

REACTIONS (10)
  - Concussion [Unknown]
  - Hypersomnia [Unknown]
  - Constipation [Unknown]
  - Fall [Unknown]
  - Diarrhoea [Unknown]
  - Contusion [Unknown]
  - Pain [Unknown]
  - Dyspnoea [Unknown]
  - Head injury [Unknown]
  - Suture insertion [Unknown]
